FAERS Safety Report 22038626 (Version 1)
Quarter: 2023Q1

REPORT INFORMATION
  Report Type: Report from Study
  Country: CO (occurrence: CO)
  Receive Date: 20230227
  Receipt Date: 20230227
  Transmission Date: 20230418
  Serious: Yes (Hospitalization)
  Sender: FDA-Public Use
  Company Number: CO-ASTELLAS-2023US006253

PATIENT
  Age: 55 Year
  Sex: Male

DRUGS (1)
  1. TACROLIMUS [Suspect]
     Active Substance: TACROLIMUS
     Indication: Liver transplant
     Dosage: 3 MG IN THE MORNING AND 2 MG AT NIGHT (EVERY 12 HOURS) (DAILY DOSE OF 5 MG)
     Route: 048

REACTIONS (2)
  - Hepatic pain [Unknown]
  - Headache [Unknown]
